FAERS Safety Report 8784645 (Version 1)
Quarter: 2012Q4

REPORT INFORMATION
  Report Type: Spontaneous
  Country: US (occurrence: None)
  Receive Date: 20120907
  Receipt Date: 20120907
  Transmission Date: 20130627
  Serious: Yes (Hospitalization)
  Sender: FDA-Public Use
  Company Number: None

PATIENT
  Age: 65 Year
  Sex: Male
  Weight: 109.1 kg

DRUGS (1)
  1. SPIRONOLACTONE [Suspect]
     Dates: start: 20120518

REACTIONS (2)
  - Hyperkalaemia [None]
  - Electrocardiogram abnormal [None]
